FAERS Safety Report 15862352 (Version 1)
Quarter: 2019Q1

REPORT INFORMATION
  Report Type: Report from Study
  Country: US (occurrence: US)
  Receive Date: 20190124
  Receipt Date: 20190124
  Transmission Date: 20190417
  Serious: Yes (Hospitalization)
  Sender: FDA-Public Use
  Company Number: US-ASTRAZENECA-2017SE64494

PATIENT
  Age: 946 Month
  Sex: Male
  Weight: 80.7 kg

DRUGS (4)
  1. BRILINTA [Suspect]
     Active Substance: TICAGRELOR
     Indication: STENT PLACEMENT
     Route: 048
     Dates: start: 201602
  2. BRILINTA [Suspect]
     Active Substance: TICAGRELOR
     Indication: MYOCARDIAL INFARCTION
     Route: 048
     Dates: start: 201602
  3. BABY ASPIRIN [Concomitant]
     Active Substance: ASPIRIN
     Dosage: 80 MG DAILY
  4. BRILINTA [Suspect]
     Active Substance: TICAGRELOR
     Indication: CARBON MONOXIDE POISONING
     Route: 048
     Dates: start: 201602

REACTIONS (10)
  - Memory impairment [Not Recovered/Not Resolved]
  - Anger [Unknown]
  - Ischaemic stroke [Not Recovered/Not Resolved]
  - Haemorrhagic diathesis [Unknown]
  - Weight decreased [Unknown]
  - Skin discolouration [Unknown]
  - Somnolence [Unknown]
  - Intentional product misuse [Unknown]
  - Scratch [Unknown]
  - Fatigue [Unknown]

NARRATIVE: CASE EVENT DATE: 201811
